FAERS Safety Report 6397796-9 (Version None)
Quarter: 2009Q4

REPORT INFORMATION
  Report Type: 
  Country: None (occurrence: None)
  Receive Date: 20091012
  Receipt Date: 20091005
  Transmission Date: 20100525
  Serious: Yes (Death, Other)
  Sender: FDA-Public Use
  Company Number: GR-CELGENEUS-066-20484-09100582

PATIENT

DRUGS (9)
  1. TINZAPARIN [Suspect]
     Indication: ACUTE CORONARY SYNDROME
     Dosage: 175 IU/KG
     Route: 065
  2. ENOXAPARIN SODIUM [Suspect]
     Indication: ACUTE CORONARY SYNDROME
     Dosage: 100 IU/KG
     Route: 065
  3. ASPIRIN [Concomitant]
     Indication: DRUG USE FOR UNKNOWN INDICATION
     Route: 065
  4. BETA BLOCKER [Concomitant]
     Indication: DRUG USE FOR UNKNOWN INDICATION
     Route: 065
  5. CALCIUM-CHANNEL ANTAGONISTS [Concomitant]
     Indication: DRUG USE FOR UNKNOWN INDICATION
     Route: 065
  6. ANGIOTENSIN-CONVERTING ENZYME INHIBITORS [Concomitant]
     Indication: DRUG USE FOR UNKNOWN INDICATION
     Route: 065
  7. GLYCOPROTEIN IIB/IIIA RECEPTOR INHIBITOR [Concomitant]
     Indication: DRUG USE FOR UNKNOWN INDICATION
     Route: 051
  8. ANTIDIABETIC TREATMENT [Concomitant]
     Indication: DRUG USE FOR UNKNOWN INDICATION
     Route: 065
  9. LIPID LOWERING TREATMENT [Concomitant]
     Indication: DRUG USE FOR UNKNOWN INDICATION
     Route: 065

REACTIONS (5)
  - ANGINA PECTORIS [None]
  - DEATH [None]
  - HAEMORRHAGE [None]
  - MYOCARDIAL INFARCTION [None]
  - THROMBOCYTOPENIA [None]
